FAERS Safety Report 24523796 (Version 2)
Quarter: 2025Q2

REPORT INFORMATION
  Report Type: Spontaneous
  Country: GB (occurrence: GB)
  Receive Date: 20241018
  Receipt Date: 20250519
  Transmission Date: 20250717
  Serious: Yes (Other)
  Sender: ALCON
  Company Number: None

PATIENT
  Sex: Female

DRUGS (1)
  1. FLUORESCEIN SODIUM [Suspect]
     Active Substance: FLUORESCEIN SODIUM
     Indication: Intraocular pressure test
     Route: 065

REACTIONS (1)
  - Corneal oedema [Unknown]
